FAERS Safety Report 12287545 (Version 1)
Quarter: 2016Q2

REPORT INFORMATION
  Report Type: Spontaneous
  Country: US (occurrence: US)
  Receive Date: 20160420
  Receipt Date: 20160420
  Transmission Date: 20160815
  Serious: No
  Sender: FDA-Public Use
  Company Number: US-BAYER-2016-067186

PATIENT
  Age: 29 Year
  Sex: Female

DRUGS (1)
  1. CLIMARA [Suspect]
     Active Substance: ESTRADIOL
     Indication: ARTIFICIAL MENOPAUSE
     Dosage: 0.1 MG, UNK
     Route: 062
     Dates: start: 20160326

REACTIONS (2)
  - Product adhesion issue [None]
  - Off label use [None]
